FAERS Safety Report 6219767-5 (Version None)
Quarter: 2009Q2

REPORT INFORMATION
  Report Type: 
  Country: None (occurrence: None)
  Receive Date: 20090609
  Receipt Date: 20090602
  Transmission Date: 20091009
  Serious: Yes (Other)
  Sender: FDA-Public Use
  Company Number: A0788025A

PATIENT
  Age: 11 Year
  Sex: Male

DRUGS (2)
  1. ADVAIR HFA [Suspect]
     Indication: ASTHMA
     Dosage: 1PUFF PER DAY
     Route: 055
     Dates: start: 20090515, end: 20090602
  2. NO CONCURRENT MEDICATION [Concomitant]

REACTIONS (6)
  - AMNESIA [None]
  - BLINDNESS [None]
  - CONVULSION [None]
  - DEHYDRATION [None]
  - FALL [None]
  - SENSORY LOSS [None]
